FAERS Safety Report 19969039 (Version 1)
Quarter: 2021Q4

REPORT INFORMATION
  Report Type: Spontaneous
  Country: DE (occurrence: DE)
  Receive Date: 20211019
  Receipt Date: 20211019
  Transmission Date: 20220303
  Serious: Yes (Disabling, Other)
  Sender: FDA-Public Use
  Company Number: None

PATIENT
  Sex: Male
  Weight: 4.3 kg

DRUGS (5)
  1. CYTOTEC [Suspect]
     Active Substance: MISOPROSTOL
     Indication: Amniotic fluid volume decreased
     Dosage: 75 UG (25 UG 13:30, 50 UB 18:15)
     Route: 064
     Dates: start: 20151001, end: 20211001
  2. CYTOTEC [Suspect]
     Active Substance: MISOPROSTOL
     Indication: Labour induction
  3. RINGERS SOLUTION [Concomitant]
     Active Substance: CALCIUM CHLORIDE\POTASSIUM CHLORIDE\SODIUM CHLORIDE
     Route: 064
     Dates: start: 20151002
  4. BUTYLSCOPOLAMINE BROMIDE [Concomitant]
     Active Substance: BUTYLSCOPOLAMINE BROMIDE
     Indication: Pain
     Route: 064
     Dates: start: 20151002
  5. MEPTAZINOL HYDROCHLORIDE [Concomitant]
     Active Substance: MEPTAZINOL HYDROCHLORIDE
     Indication: Labour pain
     Route: 064
     Dates: start: 20151002

REACTIONS (8)
  - Developmental delay [Not Recovered/Not Resolved]
  - Speech sound disorder [Not Recovered/Not Resolved]
  - Foetal heart rate decreased [Recovered/Resolved]
  - Autism spectrum disorder [Not Recovered/Not Resolved]
  - Neonatal hypoxia [Recovered/Resolved with Sequelae]
  - Foetal exposure during delivery [Unknown]
  - Growth disorder [Not Recovered/Not Resolved]
  - Adjustment disorder [Not Recovered/Not Resolved]

NARRATIVE: CASE EVENT DATE: 20151002
